FAERS Safety Report 10063550 (Version 6)
Quarter: 2015Q3

REPORT INFORMATION
  Report Type: Spontaneous
  Country: US (occurrence: US)
  Receive Date: 20140407
  Receipt Date: 20150827
  Transmission Date: 20151125
  Serious: Yes (Life-Threatening, Hospitalization, Disabling, Other)
  Sender: FDA-Public Use
  Company Number: US-009507513-1404USA001685

PATIENT
  Sex: Female
  Weight: 40.82 kg

DRUGS (10)
  1. PREDNISONE. [Concomitant]
     Active Substance: PREDNISONE
     Indication: PRODUCT USED FOR UNKNOWN INDICATION
  2. ADVAIR HFA [Concomitant]
     Active Substance: FLUTICASONE PROPIONATE\SALMETEROL XINAFOATE
     Indication: PRODUCT USED FOR UNKNOWN INDICATION
  3. SINGULAIR [Suspect]
     Active Substance: MONTELUKAST SODIUM
     Indication: ASTHMA
     Dosage: UNK
     Route: 048
     Dates: start: 20130320, end: 2013
  4. XANAX [Concomitant]
     Active Substance: ALPRAZOLAM
     Indication: PRODUCT USED FOR UNKNOWN INDICATION
  5. ZOFRAN [Concomitant]
     Active Substance: ONDANSETRON HYDROCHLORIDE
     Indication: PRODUCT USED FOR UNKNOWN INDICATION
  6. SINGULAIR [Suspect]
     Active Substance: MONTELUKAST SODIUM
     Indication: ASTHMA
     Dosage: 10 MG, QD
     Route: 048
     Dates: start: 20050916, end: 2011
  7. SINGULAIR [Suspect]
     Active Substance: MONTELUKAST SODIUM
     Indication: HYPERSENSITIVITY
     Dosage: UNK UNK, QD
     Route: 048
     Dates: start: 2012
  8. SINGULAIR [Suspect]
     Active Substance: MONTELUKAST SODIUM
     Indication: HYPERSENSITIVITY
  9. PERCOCET [Concomitant]
     Active Substance: ACETAMINOPHEN\OXYCODONE HYDROCHLORIDE
     Indication: PRODUCT USED FOR UNKNOWN INDICATION
  10. EFFEXOR [Concomitant]
     Active Substance: VENLAFAXINE HYDROCHLORIDE
     Indication: PRODUCT USED FOR UNKNOWN INDICATION

REACTIONS (37)
  - Gastrointestinal tube insertion [Recovered/Resolved]
  - Diverticulitis [Not Recovered/Not Resolved]
  - Mass excision [Not Recovered/Not Resolved]
  - Pancreatitis acute [Not Recovered/Not Resolved]
  - Peroneal nerve palsy [Recovering/Resolving]
  - Neuropathy peripheral [Recovering/Resolving]
  - Colostomy closure [Not Recovered/Not Resolved]
  - Sleep apnoea syndrome [Not Recovered/Not Resolved]
  - Stress [Unknown]
  - Pain [Recovering/Resolving]
  - Cellulitis [Recovering/Resolving]
  - Lip oedema [Recovering/Resolving]
  - Gait deviation [Unknown]
  - Deep vein thrombosis [Not Recovered/Not Resolved]
  - Quality of life decreased [Not Recovered/Not Resolved]
  - Depression [Recovering/Resolving]
  - Nightmare [Recovering/Resolving]
  - Adverse event [Not Recovered/Not Resolved]
  - Flatulence [Recovering/Resolving]
  - Eye oedema [Recovering/Resolving]
  - Cardiac disorder [Not Recovered/Not Resolved]
  - Myocardial infarction [Recovered/Resolved]
  - Colostomy [Not Recovered/Not Resolved]
  - Gastric disorder [Recovering/Resolving]
  - Lung infiltration [Recovering/Resolving]
  - Pneumonia [Recovering/Resolving]
  - Asthenia [Unknown]
  - Pulmonary mass [Unknown]
  - Cardiomyopathy [Not Recovered/Not Resolved]
  - Allergic granulomatous angiitis [Not Recovered/Not Resolved]
  - Asthma [Recovering/Resolving]
  - Neuralgia [Unknown]
  - Myocardial infarction [Not Recovered/Not Resolved]
  - Surgery [Not Recovered/Not Resolved]
  - Gastrointestinal surgery [Not Recovered/Not Resolved]
  - Abasia [Not Recovered/Not Resolved]
  - Amnesia [Recovering/Resolving]

NARRATIVE: CASE EVENT DATE: 200512
